FAERS Safety Report 13508136 (Version 3)
Quarter: 2018Q2

REPORT INFORMATION
  Report Type: Report from Study
  Country: BR (occurrence: BR)
  Receive Date: 20170503
  Receipt Date: 20180504
  Transmission Date: 20180711
  Serious: Yes (Other)
  Sender: FDA-Public Use
  Company Number: BR-BRISTOL-MYERS SQUIBB COMPANY-BMS-2017-036094

PATIENT
  Age: 73 Year
  Sex: Female

DRUGS (3)
  1. ABATACEPT [Suspect]
     Active Substance: ABATACEPT
     Indication: RHEUMATOID ARTHRITIS
     Dosage: 750 MG, QMO
     Route: 042
  2. WARFARIN                           /00014802/ [Concomitant]
     Active Substance: WARFARIN
     Indication: PRODUCT USED FOR UNKNOWN INDICATION
     Route: 065
  3. PREDNISONE. [Concomitant]
     Active Substance: PREDNISONE
     Indication: PRODUCT USED FOR UNKNOWN INDICATION
     Route: 065

REACTIONS (4)
  - Arthralgia [Recovered/Resolved]
  - Rectal cancer [Recovering/Resolving]
  - Therapy cessation [Unknown]
  - Gastrointestinal carcinoma [Recovered/Resolved]

NARRATIVE: CASE EVENT DATE: 201703
